FAERS Safety Report 8239183-4 (Version None)
Quarter: 2012Q1

REPORT INFORMATION
  Report Type: 
  Country: None (occurrence: None)
  Receive Date: 20120328
  Receipt Date: 20120320
  Transmission Date: 20120608
  Serious: Yes (Hospitalization)
  Sender: FDA-Public Use
  Company Number: US-BIOGENIDEC-2012BI004813

PATIENT
  Age: 54 Year
  Sex: Female

DRUGS (2)
  1. TYSABRI [Suspect]
     Indication: MULTIPLE SCLEROSIS
     Route: 042
     Dates: start: 20071129, end: 20111227
  2. TYSABRI [Suspect]
     Route: 042

REACTIONS (2)
  - NEUROGENIC BLADDER [None]
  - ESCHERICHIA URINARY TRACT INFECTION [None]
